FAERS Safety Report 13278495 (Version 1)
Quarter: 2017Q1

REPORT INFORMATION
  Report Type: Spontaneous
  Country: US (occurrence: US)
  Receive Date: 20170228
  Receipt Date: 20170228
  Transmission Date: 20170428
  Serious: Yes (Hospitalization, Other)
  Sender: FDA-Public Use
  Company Number: US-BAYER-2017-036126

PATIENT
  Age: 20 Year
  Sex: Male
  Weight: 61 kg

DRUGS (1)
  1. CORICIDIN HBP CHEST CONGESTION AND COUGH [Suspect]
     Active Substance: DEXTROMETHORPHAN HYDROBROMIDE\GUAIFENESIN
     Indication: DRUG ABUSE
     Dosage: 40 DF, EVERY TIME IT WAS USED
     Route: 048
     Dates: start: 2015, end: 201702

REACTIONS (5)
  - Intentional overdose [Not Recovered/Not Resolved]
  - Renal failure [Not Recovered/Not Resolved]
  - Drug abuse [Unknown]
  - Road traffic accident [Not Recovered/Not Resolved]
  - Drug dependence [Not Recovered/Not Resolved]

NARRATIVE: CASE EVENT DATE: 2015
